FAERS Safety Report 20770263 (Version 4)
Quarter: 2022Q2

REPORT INFORMATION
  Report Type: Report from Study
  Country: US (occurrence: US)
  Receive Date: 20220429
  Receipt Date: 20220624
  Transmission Date: 20220721
  Serious: Yes (Death, Other)
  Sender: FDA-Public Use
  Company Number: US-GILEAD-2022-0577991

PATIENT
  Age: 79 Year
  Sex: Female

DRUGS (3)
  1. IDELALISIB [Suspect]
     Active Substance: IDELALISIB
     Indication: Chronic lymphocytic leukaemia
     Dosage: 150 MG, BID
     Route: 048
     Dates: start: 20220331
  2. IDELALISIB [Suspect]
     Active Substance: IDELALISIB
     Indication: Lymphoma
     Dosage: 150 MG, BID
     Route: 048
     Dates: start: 20220411
  3. IDELALISIB [Suspect]
     Active Substance: IDELALISIB
     Indication: Neoplasm malignant

REACTIONS (2)
  - Death [Fatal]
  - Weight decreased [Unknown]

NARRATIVE: CASE EVENT DATE: 20220407
